FAERS Safety Report 9643171 (Version 5)
Quarter: 2014Q1

REPORT INFORMATION
  Report Type: Report from Study
  Country: IT (occurrence: IT)
  Receive Date: 20131024
  Receipt Date: 20140212
  Transmission Date: 20141002
  Serious: Yes (Death, Other)
  Sender: FDA-Public Use
  Company Number: IT-CELGENEUS-083-21880-13102133

PATIENT
  Age: 68 Year
  Sex: Male

DRUGS (7)
  1. REVLIMID [Suspect]
     Indication: PLASMA CELL MYELOMA
     Route: 048
     Dates: start: 20081009, end: 20081022
  2. REVLIMID [Suspect]
     Route: 048
     Dates: start: 200908, end: 201112
  3. MELPHALAN [Suspect]
     Indication: PLASMA CELL MYELOMA
     Route: 065
     Dates: end: 2008
  4. MELPHALAN [Suspect]
     Route: 065
     Dates: start: 20090317
  5. MELPHALAN [Suspect]
     Route: 065
     Dates: start: 20090609
  6. VELCADE [Concomitant]
     Indication: PLASMA CELL MYELOMA
     Route: 065
     Dates: start: 201207, end: 201303
  7. DEXAMETHASONE [Concomitant]
     Indication: PLASMA CELL MYELOMA
     Route: 065
     Dates: start: 201207, end: 201303

REACTIONS (1)
  - Myelodysplastic syndrome [Fatal]
